FAERS Safety Report 25462375 (Version 1)
Quarter: 2025Q2

REPORT INFORMATION
  Report Type: Spontaneous
  Country: CA (occurrence: None)
  Receive Date: 20250619
  Receipt Date: 20250619
  Transmission Date: 20250717
  Serious: Yes (Hospitalization)
  Sender: FDA-CTU
  Company Number: None

PATIENT
  Age: 63 Year
  Sex: Female
  Weight: 96.75 kg

DRUGS (1)
  1. TAVNEOS [Suspect]
     Active Substance: AVACOPAN
     Indication: Anti-neutrophil cytoplasmic antibody positive vasculitis
     Dosage: OTHER QUANTITY : 3 TABLET(S);?FREQUENCY : TWICE A DAY;?
     Route: 048
     Dates: start: 20250603, end: 20250607

REACTIONS (10)
  - Hypersensitivity [None]
  - Swelling [None]
  - Abdominal distension [None]
  - Nausea [None]
  - Dry mouth [None]
  - Tongue dry [None]
  - Blood pressure increased [None]
  - Heart rate increased [None]
  - Panic attack [None]
  - Speech disorder [None]

NARRATIVE: CASE EVENT DATE: 20250607
